FAERS Safety Report 7637288-X (Version None)
Quarter: 2011Q3

REPORT INFORMATION
  Report Type: 
  Country: None (occurrence: None)
  Receive Date: 20110726
  Receipt Date: 20110713
  Transmission Date: 20111222
  Serious: Yes (Hospitalization, Other)
  Sender: FDA-Public Use
  Company Number: US-PFIZER INC-2010123467

PATIENT
  Sex: Male

DRUGS (10)
  1. ZOCOR [Suspect]
     Dosage: UNK
     Dates: end: 20040101
  2. VIAGRA [Concomitant]
     Indication: ERECTILE DYSFUNCTION
  3. BEXTRA [Interacting]
     Indication: ARTHRALGIA
     Dosage: UNK
     Dates: start: 20030915
  4. PRILOSEC [Concomitant]
  5. VICODIN [Concomitant]
  6. NEXIUM [Concomitant]
  7. LIPITOR [Interacting]
     Indication: BLOOD CHOLESTEROL
     Dosage: UNK
     Dates: start: 20040604
  8. PAXIL [Concomitant]
  9. VIOXX [Concomitant]
  10. PRINIVIL [Concomitant]

REACTIONS (46)
  - SKIN CANCER [None]
  - ARTHRALGIA [None]
  - BLOOD URINE PRESENT [None]
  - FIBROMYALGIA [None]
  - FAECES DISCOLOURED [None]
  - EYE SWELLING [None]
  - DYSURIA [None]
  - FLANK PAIN [None]
  - PAIN [None]
  - MUSCLE DISORDER [None]
  - ASTHENIA [None]
  - MUSCULOSKELETAL STIFFNESS [None]
  - HEART RATE IRREGULAR [None]
  - MUSCULOSKELETAL PAIN [None]
  - HYPOTENSION [None]
  - CHEST DISCOMFORT [None]
  - GASTROINTESTINAL DISORDER [None]
  - CHRONIC OBSTRUCTIVE PULMONARY DISEASE [None]
  - MENTAL STATUS CHANGES [None]
  - HEADACHE [None]
  - NASAL DISORDER [None]
  - DIZZINESS [None]
  - PERIPHERAL ARTERIAL OCCLUSIVE DISEASE [None]
  - BLOOD GLUCOSE DECREASED [None]
  - PAIN IN EXTREMITY [None]
  - NASAL CONGESTION [None]
  - POLYP [None]
  - PROSTATISM [None]
  - HYPOAESTHESIA [None]
  - SKIN PAPILLOMA [None]
  - PANIC ATTACK [None]
  - BLOOD CREATINE PHOSPHOKINASE INCREASED [None]
  - THROAT IRRITATION [None]
  - ANXIETY [None]
  - CONSTIPATION [None]
  - DYSPNOEA [None]
  - LOSS OF CONSCIOUSNESS [None]
  - PANCREATITIS [None]
  - MUSCULAR WEAKNESS [None]
  - DIVERTICULUM [None]
  - OROPHARYNGEAL PAIN [None]
  - BRONCHITIS [None]
  - VERTIGO [None]
  - DRUG INTERACTION [None]
  - OCULAR HYPERAEMIA [None]
  - COUGH [None]
